FAERS Safety Report 6065670-3 (Version None)
Quarter: 2009Q1

REPORT INFORMATION
  Report Type: 
  Country: None (occurrence: None)
  Receive Date: 20090130
  Receipt Date: 20090121
  Transmission Date: 20090719
  Serious: Yes (Hospitalization)
  Sender: FDA-Public Use
  Company Number: 100#03#2009-00286

PATIENT
  Age: 60 Year
  Sex: Female

DRUGS (4)
  1. CITALOPRAM HYDROBROMIDE (CITALOPRAM) [Suspect]
     Indication: DEPRESSED MOOD
     Dosage: 40 MG ONCE DAILY ORAL
     Route: 048
     Dates: end: 20090107
  2. LITHIUM CARBONATE [Suspect]
     Indication: BIPOLAR DISORDER
     Dosage: 1 G ONCE DAILY ORAL ; 400 MG TWICE DAILY
     Route: 048
     Dates: end: 20090107
  3. LITHIUM CARBONATE [Suspect]
     Indication: BIPOLAR DISORDER
     Dosage: 1 G ONCE DAILY ORAL ; 400 MG TWICE DAILY
     Route: 048
     Dates: start: 20090113
  4. ZOPICLONE (ZOPICLONE) [Concomitant]

REACTIONS (1)
  - SEROTONIN SYNDROME [None]
